FAERS Safety Report 14721159 (Version 1)
Quarter: 2018Q2

REPORT INFORMATION
  Report Type: Spontaneous
  Country: IT (occurrence: IT)
  Receive Date: 20180405
  Receipt Date: 20180405
  Transmission Date: 20180711
  Serious: Yes (Life-Threatening, Other)
  Sender: FDA-Public Use
  Company Number: IT-ACS-001055

PATIENT
  Age: 70 Year
  Sex: Male

DRUGS (1)
  1. AMPICILLIN SULBACTAM [Suspect]
     Active Substance: AMPICILLIN SODIUM\SULBACTAM SODIUM
     Indication: INFECTION PROPHYLAXIS
     Route: 041

REACTIONS (1)
  - Kounis syndrome [Recovered/Resolved]
